FAERS Safety Report 5924934-1 (Version None)
Quarter: 2008Q4

REPORT INFORMATION
  Report Type: 
  Country: None (occurrence: None)
  Receive Date: 20081020
  Receipt Date: 20081020
  Transmission Date: 20090506
  Serious: Yes (Other)
  Sender: FDA-Public Use
  Company Number: None

PATIENT
  Age: 22 Year
  Sex: Female
  Weight: 59.8748 kg

DRUGS (1)
  1. AMNESTEEM [Suspect]
     Indication: ACNE
     Dosage: 40 MG BID PO
     Route: 048
     Dates: start: 20080830, end: 20080917

REACTIONS (2)
  - ALOPECIA [None]
  - MYALGIA [None]
